FAERS Safety Report 25168515 (Version 1)
Quarter: 2025Q2

REPORT INFORMATION
  Report Type: Spontaneous
  Country: US (occurrence: US)
  Receive Date: 20250407
  Receipt Date: 20250407
  Transmission Date: 20250716
  Serious: No
  Sender: FERRING
  Company Number: US-FERRINGPH-2025FE00658

PATIENT
  Age: 73 Year
  Sex: Male

DRUGS (1)
  1. ADSTILADRIN [Suspect]
     Active Substance: NADOFARAGENE FIRADENOVEC-VNCG
     Indication: Product used for unknown indication
     Route: 065
     Dates: start: 20250207, end: 20250207

REACTIONS (13)
  - Weight decreased [Unknown]
  - Diarrhoea [Unknown]
  - Heart rate increased [Unknown]
  - Mobility decreased [Unknown]
  - Blood glucose increased [Unknown]
  - Body temperature fluctuation [Unknown]
  - Musculoskeletal chest pain [Unknown]
  - Pollakiuria [Unknown]
  - Decreased appetite [Unknown]
  - Vomiting [Unknown]
  - Nausea [Unknown]
  - Abdominal discomfort [Unknown]
  - Headache [Unknown]

NARRATIVE: CASE EVENT DATE: 20250201
